FAERS Safety Report 8924439 (Version 4)
Quarter: 2013Q2

REPORT INFORMATION
  Report Type: Spontaneous
  Country: GB (occurrence: GB)
  Receive Date: 20121126
  Receipt Date: 20130415
  Transmission Date: 20140414
  Serious: Yes (Hospitalization, Other)
  Sender: FDA-Public Use
  Company Number: PHHY2012GB105693

PATIENT
  Age: 49 Year
  Sex: Male

DRUGS (11)
  1. ATORVASTATIN CALCIUM [Suspect]
     Indication: BLOOD CHOLESTEROL INCREASED
     Dosage: 20 MG, DAILY
     Route: 048
     Dates: start: 200406
  2. ATORVASTATIN CALCIUM [Suspect]
     Indication: BLOOD CHOLESTEROL INCREASED
     Dosage: 20 MG, QD
     Route: 048
     Dates: start: 2004
  3. ATORVASTATIN CALCIUM [Suspect]
     Indication: BLOOD CHOLESTEROL INCREASED
  4. EZETROL [Suspect]
     Indication: BLOOD CHOLESTEROL INCREASED
     Dosage: 10 MG, DAILY
     Route: 048
     Dates: start: 200406
  5. EZETROL [Suspect]
     Dosage: 10 MG, QD
     Route: 048
     Dates: start: 200406
  6. VIAGRA [Concomitant]
     Indication: ERECTILE DYSFUNCTION
     Dosage: 50 MG, UNK
     Route: 048
     Dates: start: 1999
  7. CELLCEPT [Concomitant]
     Dosage: 1 MG, BID
  8. PREDNISOLONE [Concomitant]
     Dosage: 7 MG, UNK
  9. PREDNISOLONE [Concomitant]
     Dosage: 10 MG, UNK
     Dates: end: 200912
  10. LANSOPRAZOLE [Concomitant]
  11. FOSAMAX [Concomitant]
     Indication: OSTEOPOROSIS PROPHYLAXIS
     Dosage: 70 MG, QW
     Route: 048

REACTIONS (32)
  - Vitreous detachment [Recovering/Resolving]
  - Retinal tear [Unknown]
  - Uveitis [Recovering/Resolving]
  - Fungal skin infection [Not Recovered/Not Resolved]
  - Tinea versicolour [Unknown]
  - Corneal abrasion [Unknown]
  - Arrhythmia [Recovered/Resolved]
  - Road traffic accident [Unknown]
  - Immunosuppression [Recovered/Resolved]
  - Seborrhoeic dermatitis [Unknown]
  - Muscle injury [Recovering/Resolving]
  - Musculoskeletal chest pain [Unknown]
  - Fall [Unknown]
  - Arthralgia [Unknown]
  - Muscle strain [Unknown]
  - Groin pain [Unknown]
  - Rib fracture [Unknown]
  - Retinal detachment [Recovered/Resolved]
  - Actinic keratosis [Recovered/Resolved]
  - Erythrasma [Unknown]
  - Melanocytic naevus [Recovered/Resolved]
  - Contusion [Unknown]
  - Pain in extremity [Unknown]
  - Joint swelling [Unknown]
  - Neck pain [Unknown]
  - Back pain [Unknown]
  - Tinnitus [Unknown]
  - Animal bite [Unknown]
  - Joint stiffness [Unknown]
  - Laboratory test abnormal [Unknown]
  - Upper respiratory tract infection [Recovering/Resolving]
  - Fungal infection [Not Recovered/Not Resolved]
